FAERS Safety Report 9146528 (Version 1)
Quarter: 2013Q1

REPORT INFORMATION
  Report Type: Spontaneous
  Country: US (occurrence: US)
  Receive Date: 20130307
  Receipt Date: 20130307
  Transmission Date: 20140127
  Serious: No
  Sender: FDA-Public Use
  Company Number: US-GLAXOSMITHKLINE-A0993505A

PATIENT
  Age: 70 Year
  Sex: Male

DRUGS (3)
  1. REQUIP [Suspect]
     Indication: RESTLESS LEGS SYNDROME
     Dosage: .5MG SEE DOSAGE TEXT
     Route: 048
     Dates: start: 2000
  2. REQUIP XL [Suspect]
     Indication: RESTLESS LEGS SYNDROME
     Dosage: 2MG IN THE MORNING
     Route: 048
  3. MULTIPLE MEDICATIONS [Concomitant]

REACTIONS (2)
  - Drug ineffective [Unknown]
  - Formication [Unknown]
